FAERS Safety Report 16053794 (Version 1)
Quarter: 2019Q1

REPORT INFORMATION
  Report Type: Spontaneous
  Country: IT (occurrence: IT)
  Receive Date: 20190308
  Receipt Date: 20190308
  Transmission Date: 20190418
  Serious: Yes (Other)
  Sender: FDA-Public Use
  Company Number: IT-PFIZER INC-2019102277

PATIENT
  Age: 22 Year
  Sex: Female

DRUGS (5)
  1. ALPRAZOLAM. [Suspect]
     Active Substance: ALPRAZOLAM
     Dosage: 2 DF, SINGLE
     Route: 048
     Dates: start: 20190130
  2. STILNOX [Suspect]
     Active Substance: ZOLPIDEM TARTRATE
     Dosage: 2 DF, SINGLE
     Route: 048
     Dates: start: 20190130
  3. BRUFEN [Suspect]
     Active Substance: IBUPROFEN
     Dosage: 2 DF, SINGLE
     Route: 048
     Dates: start: 20190130
  4. ZOLOFT [Suspect]
     Active Substance: SERTRALINE HYDROCHLORIDE
     Dosage: 14 DF, SINGLE
     Route: 048
     Dates: start: 20190130
  5. ACETYLSALICYLIC ACID [Suspect]
     Active Substance: ASPIRIN
     Dosage: 200 MG, SINGLE
     Route: 048
     Dates: start: 20190130

REACTIONS (4)
  - Headache [Unknown]
  - Drug abuse [Unknown]
  - Urinary retention [Unknown]
  - Toxicity to various agents [Unknown]

NARRATIVE: CASE EVENT DATE: 20190130
